FAERS Safety Report 17605444 (Version 4)
Quarter: 2020Q2

REPORT INFORMATION
  Report Type: Spontaneous
  Country: US (occurrence: US)
  Receive Date: 20200331
  Receipt Date: 20200512
  Transmission Date: 20200713
  Serious: Yes (Other)
  Sender: FDA-Public Use
  Company Number: US-PFIZER INC-2020125655

PATIENT
  Age: 64 Year
  Sex: Male
  Weight: 79.38 kg

DRUGS (3)
  1. NIVESTYM [Suspect]
     Active Substance: FILGRASTIM-AAFI
     Dosage: UNK (300 MCG/0.5 ML SOLUTION FOR INJECTION/INFUSION)
  2. NIVESTYM [Suspect]
     Active Substance: FILGRASTIM-AAFI
     Indication: NON-HODGKIN^S LYMPHOMA
     Dosage: 480 UG, UNK
  3. GLIMEPIRIDE. [Concomitant]
     Active Substance: GLIMEPIRIDE
     Indication: TYPE 2 DIABETES MELLITUS
     Dosage: 1 MG, 2X/DAY

REACTIONS (6)
  - Product complaint [Unknown]
  - Accidental exposure to product [Unknown]
  - White blood cell count decreased [Unknown]
  - Exposure via skin contact [Unknown]
  - Product dose omission [Unknown]
  - Poor quality product administered [Unknown]
